FAERS Safety Report 8126493 (Version 5)
Quarter: 2013Q3

REPORT INFORMATION
  Report Type: Report from Study
  Country: US (occurrence: US)
  Receive Date: 20110908
  Receipt Date: 20130903
  Transmission Date: 20140515
  Serious: Yes (Disabling)
  Sender: FDA-Public Use
  Company Number: US-UCBSA-040192

PATIENT
  Age: 70 Year
  Sex: Male
  Weight: 56.69 kg

DRUGS (7)
  1. CIMZIA [Suspect]
     Indication: CROHN^S DISEASE
     Route: 058
     Dates: start: 20090826, end: 20110801
  2. NEXIUM [Concomitant]
  3. PERCOCET [Concomitant]
  4. FENTANYL TDS [Concomitant]
     Dosage: MCG PATCHES, TWO PATCH EVERY 3 DAYS
  5. VITAMIN B [Concomitant]
  6. CALTRATE [Concomitant]
  7. MULTIVITAMIN [Concomitant]

REACTIONS (1)
  - Lymphoma [Not Recovered/Not Resolved]
